FAERS Safety Report 4455788-0 (Version None)
Quarter: 2004Q3

REPORT INFORMATION
  Report Type: 
  Country: None (occurrence: None)
  Receive Date: 20040920
  Receipt Date: 20040903
  Transmission Date: 20050211
  Serious: Yes (Hospitalization)
  Sender: FDA-Public Use
  Company Number: 2004-BP-06980BP

PATIENT
  Age: 90 Year
  Sex: Male

DRUGS (11)
  1. COMBIVENT [Suspect]
     Indication: CHRONIC OBSTRUCTIVE AIRWAYS DISEASE
     Dosage: SEE IMAGE
     Route: 055
     Dates: start: 20040824
  2. ALBUTEROL SULFATE [Concomitant]
  3. SEREVENT [Concomitant]
  4. IPRATROPIUM BROMIDE [Concomitant]
  5. PLAVIX [Concomitant]
  6. BAYER [Concomitant]
  7. FUROSEMIDE [Concomitant]
  8. AVAPRO [Concomitant]
  9. CENTRUM SILVER (CENTRUM SILVER) [Concomitant]
  10. VITAMIN E [Concomitant]
  11. COD LIVER OIL [Concomitant]

REACTIONS (3)
  - DRUG EFFECT DECREASED [None]
  - DYSPNOEA EXERTIONAL [None]
  - PNEUMONIA [None]
